FAERS Safety Report 7481433-6 (Version None)
Quarter: 2011Q2

REPORT INFORMATION
  Report Type: 
  Country: None (occurrence: None)
  Receive Date: 20110516
  Receipt Date: 20110505
  Transmission Date: 20111010
  Serious: Yes (Hospitalization)
  Sender: FDA-Public Use
  Company Number: FR-ACTELION-A-CH2011-47785

PATIENT
  Age: 91 Year
  Sex: Male

DRUGS (9)
  1. ACETAMINOPHEN [Concomitant]
  2. TRAMADOL HCL [Concomitant]
  3. LYRICA [Concomitant]
  4. NEXIUM [Concomitant]
  5. ALPRAZOLAM [Concomitant]
  6. COLCHICINE W/PAPAVER SOM LA/TIEMONIUM METHYLS [Concomitant]
  7. TRACLEER [Suspect]
     Indication: SKIN ULCER
     Dosage: 125 MG, UNK
     Route: 048
  8. ESCITALOPRAM [Concomitant]
  9. ACUPAN [Concomitant]

REACTIONS (5)
  - ASPARTATE AMINOTRANSFERASE INCREASED [None]
  - LIVER FUNCTION TEST ABNORMAL [None]
  - ALANINE AMINOTRANSFERASE INCREASED [None]
  - ESCHAR [None]
  - BLOOD CREATINE PHOSPHOKINASE INCREASED [None]
